FAERS Safety Report 9106632 (Version 2)
Quarter: 2014Q3

REPORT INFORMATION
  Report Type: Spontaneous
  Country: MX (occurrence: MX)
  Receive Date: 20130221
  Receipt Date: 20140723
  Transmission Date: 20150326
  Serious: Yes (Other)
  Sender: FDA-Public Use
  Company Number: PHHY2013MX015310

PATIENT
  Age: 72 Year
  Sex: Female

DRUGS (2)
  1. MIFLONIDE [Suspect]
     Active Substance: BUDESONIDE
     Indication: ASTHMA
     Dosage: 1 DF, DAILY
     Dates: start: 201106, end: 201405
  2. DIOVAN [Suspect]
     Active Substance: VALSARTAN
     Indication: BLOOD PRESSURE
     Dosage: 1 DF, DAILY
     Dates: start: 201209

REACTIONS (10)
  - Back pain [Not Recovered/Not Resolved]
  - Asthma [Recovered/Resolved]
  - Bronchitis [Recovered/Resolved]
  - Muscular weakness [Not Recovered/Not Resolved]
  - Cough [Not Recovered/Not Resolved]
  - Chest pain [Not Recovered/Not Resolved]
  - Fatigue [Recovered/Resolved]
  - Pain in extremity [Not Recovered/Not Resolved]
  - Gastrooesophageal reflux disease [Not Recovered/Not Resolved]
  - Depression [Not Recovered/Not Resolved]

NARRATIVE: CASE EVENT DATE: 20130110
